FAERS Safety Report 18944733 (Version 2)
Quarter: 2021Q1

REPORT INFORMATION
  Report Type: Spontaneous
  Country: NL (occurrence: NL)
  Receive Date: 20210226
  Receipt Date: 20210309
  Transmission Date: 20210420
  Serious: Yes (Hospitalization)
  Sender: FDA-Public Use
  Company Number: NL-PFIZER INC-2021187676

PATIENT
  Age: 63 Year
  Sex: Male

DRUGS (12)
  1. MEKTOVI [Concomitant]
     Active Substance: BINIMETINIB
     Indication: METASTATIC MALIGNANT MELANOMA
     Dosage: 45 MG, 2X/DAY (BID)
     Route: 048
  2. OMEPRAZOLE. [Concomitant]
     Active Substance: OMEPRAZOLE
     Dosage: 40 MG, 2X/DAY (BID)
  3. PREDNISOLONE. [Concomitant]
     Active Substance: PREDNISOLONE
     Dosage: 10 MG, 1X/DAY (QD)
  4. PREDNISOLONE. [Concomitant]
     Active Substance: PREDNISOLONE
     Dosage: 5 MG, 1X/DAY (QD)
  5. PARACETAMOL [Concomitant]
     Active Substance: ACETAMINOPHEN
     Dosage: 1000 MG, 4X/DAY (QID P.R.N.)
  6. SALBUTAMOL [Concomitant]
     Active Substance: ALBUTEROL
     Dosage: UNK, 4X/DAY (QID P.R.N)
  7. BRAFTOVI [Suspect]
     Active Substance: ENCORAFENIB
     Indication: METASTATIC MALIGNANT MELANOMA
     Dosage: 900 MG, 1X/DAY (QD)
     Route: 048
  8. GASTILOX [Concomitant]
     Dosage: UNK, 3X/DAY (TID)
  9. PREDNISOLONE. [Concomitant]
     Active Substance: PREDNISOLONE
     Dosage: 5 MG OR 10 MG EVERY OTHER DAY
  10. METOCLOPRAMIDE. [Concomitant]
     Active Substance: METOCLOPRAMIDE
     Dosage: 10 MG, 3X/DAY (TID P.R.N)
  11. COTRIMOXAZOL [Concomitant]
     Active Substance: SULFAMETHOXAZOLE\TRIMETHOPRIM
     Dosage: 480 MG, 1X/DAY (QD)
  12. FLUCONAZOLE. [Concomitant]
     Active Substance: FLUCONAZOLE
     Dosage: 100 MG, 1X/DAY (QD)

REACTIONS (6)
  - Abdominal distension [Unknown]
  - Vomiting [Unknown]
  - Abdominal discomfort [Unknown]
  - Myalgia [Unknown]
  - Accidental overdose [Unknown]
  - Toxicity to various agents [Unknown]
